FAERS Safety Report 17676595 (Version 3)
Quarter: 2020Q2

REPORT INFORMATION
  Report Type: Spontaneous
  Country: US (occurrence: US)
  Receive Date: 20200416
  Receipt Date: 20200625
  Transmission Date: 20200714
  Serious: Yes (Hospitalization, Disabling, Other)
  Sender: FDA-Public Use
  Company Number: US-GILEAD-2020-0459108

PATIENT
  Age: 31 Year
  Sex: Male
  Weight: 92.6 kg

DRUGS (1)
  1. EPCLUSA [Suspect]
     Active Substance: SOFOSBUVIR\VELPATASVIR
     Indication: CHRONIC HEPATITIS C
     Dosage: 1 DOSAGE FORM
     Route: 048
     Dates: start: 20200103, end: 20200229

REACTIONS (8)
  - Pain in extremity [Not Recovered/Not Resolved]
  - Aspartate aminotransferase abnormal [Unknown]
  - Muscle spasms [Unknown]
  - Fall [Unknown]
  - Chromaturia [Unknown]
  - Myopathy [Recovered/Resolved]
  - Blood creatine phosphokinase increased [Unknown]
  - Rhabdomyolysis [Recovered/Resolved]

NARRATIVE: CASE EVENT DATE: 20200226
